FAERS Safety Report 18770929 (Version 6)
Quarter: 2021Q4

REPORT INFORMATION
  Report Type: Report from Study
  Country: US (occurrence: US)
  Receive Date: 20210121
  Receipt Date: 20211223
  Transmission Date: 20220303
  Serious: Yes (Hospitalization)
  Sender: FDA-Public Use
  Company Number: US-NOVARTISPH-NVSC2021US007606

PATIENT
  Age: 65 Year
  Sex: Male

DRUGS (2)
  1. ENTRESTO [Suspect]
     Active Substance: SACUBITRIL\VALSARTAN
     Indication: Product used for unknown indication
     Dosage: 1 DOSAGE FORM, BID (49/51 MG)
     Route: 048
     Dates: start: 20201009
  2. ENTRESTO [Suspect]
     Active Substance: SACUBITRIL\VALSARTAN
     Dosage: 1 DOSAGE FORM, BID (24/26 MG)
     Route: 065

REACTIONS (14)
  - Pneumonia [Recovering/Resolving]
  - Bacteraemia [Recovering/Resolving]
  - Renal disorder [Recovering/Resolving]
  - Weight increased [Unknown]
  - Peripheral swelling [Recovering/Resolving]
  - Blood pressure fluctuation [Unknown]
  - Weight decreased [Unknown]
  - Balance disorder [Recovering/Resolving]
  - Swelling of eyelid [Unknown]
  - Joint injury [Unknown]
  - Pollakiuria [Unknown]
  - Blood glucose increased [Unknown]
  - Blood pressure increased [Unknown]
  - Wrong technique in product usage process [Unknown]

NARRATIVE: CASE EVENT DATE: 20210916
